FAERS Safety Report 11741693 (Version 6)
Quarter: 2016Q3

REPORT INFORMATION
  Report Type: Report from Study
  Country: BO (occurrence: BO)
  Receive Date: 20151116
  Receipt Date: 20160726
  Transmission Date: 20161109
  Serious: Yes (Death, Other)
  Sender: FDA-Public Use
  Company Number: PHHY2015BO115700

PATIENT
  Age: 37 Year
  Sex: Female
  Weight: 52 kg

DRUGS (4)
  1. HIDROXIUREA [Concomitant]
     Active Substance: HYDROXYUREA
     Indication: PRODUCT USED FOR UNKNOWN INDICATION
     Dosage: 500 MG, BID
     Route: 048
  2. ALLOPURINOL. [Concomitant]
     Active Substance: ALLOPURINOL
     Indication: LEUKOCYTOSIS
     Dosage: 300 MG, QD
     Route: 048
     Dates: start: 20130909, end: 20130916
  3. GLIVEC [Suspect]
     Active Substance: IMATINIB MESYLATE
     Indication: CHRONIC MYELOID LEUKAEMIA
     Dosage: 600 MG, UNK
     Route: 048
     Dates: start: 20070403, end: 20151219
  4. GLIVEC [Suspect]
     Active Substance: IMATINIB MESYLATE
     Dosage: 600 MG, UNK
     Route: 065
     Dates: start: 20160322

REACTIONS (14)
  - Haemoglobin decreased [Unknown]
  - Malignant neoplasm progression [Unknown]
  - Malaise [Unknown]
  - White blood cell count increased [Unknown]
  - Chronic myeloid leukaemia [Fatal]
  - Blast crisis in myelogenous leukaemia [Fatal]
  - Premature delivery [Unknown]
  - Maternal exposure during pregnancy [Unknown]
  - Platelet count increased [Unknown]
  - Pyrexia [Unknown]
  - Chest pain [Unknown]
  - Splenomegaly [Unknown]
  - General physical health deterioration [Unknown]
  - Bone pain [Unknown]

NARRATIVE: CASE EVENT DATE: 20130121
